FAERS Safety Report 8018996 (Version 3)
Quarter: 2013Q2

REPORT INFORMATION
  Report Type: Report from Study
  Country: AU (occurrence: AU)
  Receive Date: 20110701
  Receipt Date: 20130514
  Transmission Date: 20140414
  Serious: Yes (Hospitalization, Other)
  Sender: FDA-Public Use
  Company Number: PHHY2011AU56057

PATIENT
  Age: 73 Year
  Sex: Male

DRUGS (2)
  1. EXJADE [Suspect]
     Indication: IRON OVERLOAD
     Dosage: 500 MG
     Route: 048
     Dates: start: 20100621
  2. EXJADE [Suspect]
     Dosage: 1750 MG
     Route: 048

REACTIONS (4)
  - Lung infection [Recovering/Resolving]
  - Lung disorder [Unknown]
  - Malaise [Unknown]
  - Nervousness [Unknown]
